FAERS Safety Report 7591543-0 (Version None)
Quarter: 2011Q2

REPORT INFORMATION
  Report Type: 
  Country: None (occurrence: None)
  Receive Date: 20110627
  Receipt Date: 20110614
  Transmission Date: 20111010
  Serious: Yes (Other)
  Sender: FDA-Public Use
  Company Number: AUR-APL-2011-03060

PATIENT
  Sex: Male
  Weight: 4.03 kg

DRUGS (1)
  1. SERTRALINE HYDROCHLORIDE [Suspect]
     Indication: DEPRESSION
     Dosage: (150 MG, 1 D), TRANSPLACENTAL
     Route: 064

REACTIONS (5)
  - LARGE FOR DATES BABY [None]
  - OPISTHOTONUS [None]
  - AGITATION NEONATAL [None]
  - FEELING JITTERY [None]
  - MATERNAL DRUGS AFFECTING FOETUS [None]
